FAERS Safety Report 12280819 (Version 1)
Quarter: 2016Q2

REPORT INFORMATION
  Report Type: Spontaneous
  Country: US (occurrence: None)
  Receive Date: 20160418
  Receipt Date: 20160418
  Transmission Date: 20160815
  Serious: Yes (Other)
  Sender: FDA-Public Use
  Company Number: None

PATIENT
  Age: 63 Year
  Sex: Female

DRUGS (1)
  1. NEUPOGEN [Suspect]
     Active Substance: FILGRASTIM
     Indication: LEUKAEMIA MONOCYTIC
     Dosage: 300MCG DAILY FOR 7-10 DAYS SQ
     Route: 058
     Dates: start: 20160220

REACTIONS (1)
  - Bone pain [None]

NARRATIVE: CASE EVENT DATE: 20160404
